FAERS Safety Report 7618359-0 (Version None)
Quarter: 2011Q3

REPORT INFORMATION
  Report Type: 
  Country: None (occurrence: None)
  Receive Date: 20110718
  Receipt Date: 20110706
  Transmission Date: 20111222
  Serious: Yes (Other)
  Sender: FDA-Public Use
  Company Number: PHHY2011JP19772

PATIENT
  Sex: Male

DRUGS (14)
  1. NEORAL [Suspect]
     Dosage: 150 MG
     Route: 048
     Dates: start: 20081002
  2. NEORAL [Suspect]
     Dosage: 120 MG
     Route: 048
     Dates: start: 20090219, end: 20090415
  3. PREDNISOLONE [Concomitant]
     Indication: HEART TRANSPLANT
     Dosage: 2.5 MG
     Route: 048
     Dates: start: 20090619
  4. CERTICAN [Suspect]
     Dosage: 1.5 MG
     Route: 048
     Dates: start: 20090402, end: 20090429
  5. NEORAL [Suspect]
     Indication: HEART TRANSPLANT
     Dosage: 190 MG
     Route: 048
     Dates: start: 20040930
  6. CELLCEPT [Concomitant]
     Indication: HEART TRANSPLANT
     Dosage: 500 MG
     Route: 048
     Dates: start: 20031104
  7. CERTICAN [Suspect]
     Indication: HEART TRANSPLANT
     Dosage: 1.5 MG
     Route: 048
     Dates: start: 20080823, end: 20080828
  8. CERTICAN [Suspect]
     Dosage: 1.25 MG
     Route: 048
     Dates: start: 20080907, end: 20080930
  9. NEORAL [Suspect]
     Dosage: 190 MG
     Route: 048
     Dates: start: 20080101, end: 20081001
  10. NEORAL [Suspect]
     Dosage: 150 MG
     Route: 048
     Dates: start: 20090218, end: 20090218
  11. CERTICAN [Suspect]
     Dosage: 1 MG
     Route: 048
     Dates: start: 20080829, end: 20080906
  12. CERTICAN [Suspect]
     Dosage: 1 MG
     Route: 048
     Dates: start: 20081001, end: 20090401
  13. CERTICAN [Suspect]
     Dosage: 1 MG
     Route: 048
     Dates: start: 20090430
  14. CELLCEPT [Concomitant]
     Dosage: 500 MG
     Route: 048
     Dates: start: 20031104

REACTIONS (1)
  - RENAL DISORDER [None]
